FAERS Safety Report 9098535 (Version 1)
Quarter: 2013Q1

REPORT INFORMATION
  Report Type: Spontaneous
  Country: CA (occurrence: CA)
  Receive Date: 20130213
  Receipt Date: 20130213
  Transmission Date: 20140127
  Serious: Yes (Other)
  Sender: FDA-Public Use
  Company Number: PHHY2013CA012840

PATIENT
  Sex: 0

DRUGS (16)
  1. GLEEVEC [Suspect]
     Dosage: 400 MG, EVERY DAY
     Route: 048
  2. CYTARABINE [Suspect]
     Dosage: 40 MG, UNK
     Route: 037
  3. DOXORUBICIN [Suspect]
     Dosage: 30 MG/M2, UNK
     Route: 042
  4. METHOTREXATE [Suspect]
     Dosage: 4000 MG/M2, UNK
     Route: 042
  5. METHOTREXATE [Suspect]
     Dosage: 12 MG, UNK
     Route: 037
  6. HYDROCORTISONE [Suspect]
     Dosage: 15 MG, UNK
     Route: 037
  7. L-ASPARAGINASE [Suspect]
     Route: 030
  8. LEUCOVORIN [Suspect]
  9. PREDNISONE [Suspect]
     Dosage: 10 MG, (4 EVERY 1 DAYS)
     Route: 048
  10. VINCRISTINE [Suspect]
     Dosage: 2 MG, UNK
     Route: 042
  11. ALENDRONATE [Concomitant]
  12. CALCIUM + VITAMIN D [Concomitant]
  13. FLUCONAZOLE [Concomitant]
  14. PENTAMIDINE ISETHIONATE [Concomitant]
  15. RISEDRONATE SODIUM [Concomitant]
  16. TRIMETHOPRIM SULFAMETHOXAZOLE [Concomitant]

REACTIONS (1)
  - Ileus [Unknown]
